FAERS Safety Report 11078635 (Version 1)
Quarter: 2015Q2

REPORT INFORMATION
  Report Type: Spontaneous
  Country: US (occurrence: None)
  Receive Date: 20150428
  Receipt Date: 20150428
  Transmission Date: 20150821
  Serious: Yes (Hospitalization)
  Sender: FDA-Public Use
  Company Number: HYP201504-000042

PATIENT
  Age: 14 Year
  Sex: Female

DRUGS (4)
  1. RAVICTI [Suspect]
     Active Substance: GLYCEROL PHENYLBUTYRATE
     Indication: ORNITHINE TRANSCARBAMOYLASE DEFICIENCY
     Dates: start: 201305
  2. MOTRIN [Concomitant]
     Active Substance: IBUPROFEN
  3. CITRULLINE [Concomitant]
     Active Substance: CITRULLINE
  4. CYCLINEX 2 (ASCORBIC ACID, BIOTIN, CALCIUM CHLORIDE, CHOLINE, CHROMIUM, COPPER, FOLIC ACID, INOSITOL, IODINE, IRON, LEVOCAR NITINE, LINOLEIC ACID, MAGNESIUM, MANGANESE, MOLYBDENUM, NICOTINIC ACID, PANTOTHENIC ACID, PHOPSHORUS, POTASSIUM, PYRIODXINE HYDROCHLORIDE, RETINOL, RIBOFLAVIN, SELENIM, SODIUM, THIAMINE, VITAMIN B12 NOS, VITAMIN D NOS, VITAMIN E NOS, VITAMIN K NOS, ZINC) [Concomitant]

REACTIONS (3)
  - Gastroenteritis viral [None]
  - Ornithine transcarbamoylase deficiency [None]
  - Condition aggravated [None]

NARRATIVE: CASE EVENT DATE: 201503
